FAERS Safety Report 5409223-6 (Version None)
Quarter: 2007Q3

REPORT INFORMATION
  Report Type: 
  Country: None (occurrence: None)
  Receive Date: 20070807
  Receipt Date: 20070807
  Transmission Date: 20080115
  Serious: No
  Sender: FDA-Public Use
  Company Number: None

PATIENT
  Sex: Female
  Weight: 73.4827 kg

DRUGS (2)
  1. CITALOPRAM HYDROBROMIDE [Suspect]
     Indication: ANXIETY
     Dosage: 1 QD
     Dates: start: 20000928
  2. CITALOPRAM HYDROBROMIDE [Suspect]
     Indication: STRESS
     Dosage: 1 QD
     Dates: start: 20000928

REACTIONS (3)
  - INSOMNIA [None]
  - IRRITABILITY [None]
  - WEIGHT INCREASED [None]
